FAERS Safety Report 8235309-7 (Version None)
Quarter: 2012Q1

REPORT INFORMATION
  Report Type: 
  Country: None (occurrence: None)
  Receive Date: 20120326
  Receipt Date: 20120321
  Transmission Date: 20120608
  Serious: No
  Sender: FDA-Public Use
  Company Number: US-PFIZER INC-2012074761

PATIENT
  Sex: Female
  Weight: 98.866 kg

DRUGS (9)
  1. LIPITOR [Suspect]
     Dosage: UNK
  2. POTASSIUM CHLORIDE [Suspect]
     Dosage: UNK
  3. CHANTIX [Suspect]
     Indication: SMOKING CESSATION THERAPY
     Dosage: 0.5 MG, DAILY
     Dates: start: 20110101, end: 20110101
  4. XANAX [Suspect]
     Dosage: UNK
  5. AMBIEN [Concomitant]
     Indication: SLEEP DISORDER
     Dosage: 10 MG, AS NEEDED
  6. BUMEX [Suspect]
     Indication: DIURETIC THERAPY
     Dosage: UNK
  7. CHANTIX [Suspect]
     Dosage: 1 MG, 2X/DAY
     Dates: start: 20110101, end: 20110301
  8. PLAVIX [Suspect]
     Dosage: UNK
  9. LEXAPRO [Concomitant]
     Indication: ANXIETY
     Dosage: 10 MG, DAILY

REACTIONS (2)
  - ABNORMAL DREAMS [None]
  - NAUSEA [None]
